FAERS Safety Report 6971420-6 (Version None)
Quarter: 2010Q3

REPORT INFORMATION
  Report Type: 
  Country: None (occurrence: None)
  Receive Date: 20100908
  Receipt Date: 20100825
  Transmission Date: 20110219
  Serious: Yes (Other)
  Sender: FDA-Public Use
  Company Number: US-MYLANLABS-2010S1015543

PATIENT
  Age: 6 Year
  Sex: Male

DRUGS (2)
  1. ZONISAMIDE [Suspect]
     Indication: EPILEPSY
     Route: 065
  2. TOPIRAMATE [Suspect]
     Indication: EPILEPSY
     Route: 065

REACTIONS (1)
  - CALCULUS URINARY [None]
